FAERS Safety Report 6667658-8 (Version None)
Quarter: 2010Q2

REPORT INFORMATION
  Report Type: 
  Country: None (occurrence: None)
  Receive Date: 20100405
  Receipt Date: 20100324
  Transmission Date: 20101027
  Serious: Yes (Hospitalization)
  Sender: FDA-Public Use
  Company Number: B0642613A

PATIENT
  Sex: Female

DRUGS (6)
  1. DEROXAT [Suspect]
     Indication: DEPRESSION
     Dosage: 1UNIT PER DAY
     Route: 048
     Dates: start: 20000101
  2. ACUPAN [Suspect]
     Indication: ABDOMINAL PAIN
     Dosage: 6UNIT PER DAY
     Route: 065
  3. OFLOCET [Suspect]
     Indication: PYELONEPHRITIS
     Route: 048
     Dates: start: 20090925, end: 20091001
  4. CORDARONE [Suspect]
     Indication: TACHYCARDIA
     Dosage: 1UNIT PER DAY
     Route: 065
     Dates: start: 20091024
  5. ROCEPHIN [Concomitant]
     Indication: PYELONEPHRITIS
     Route: 065
     Dates: start: 20091001
  6. FLAGYL [Concomitant]
     Route: 065
     Dates: start: 20091014

REACTIONS (5)
  - COLITIS ISCHAEMIC [None]
  - DIARRHOEA [None]
  - DYSARTHRIA [None]
  - INFLAMMATION [None]
  - SOMNOLENCE [None]
